FAERS Safety Report 6183800-X (Version None)
Quarter: 2009Q2

REPORT INFORMATION
  Report Type: 
  Country: None (occurrence: None)
  Receive Date: 20090506
  Receipt Date: 20090331
  Transmission Date: 20091009
  Serious: Yes (Hospitalization)
  Sender: FDA-Public Use
  Company Number: 1000005702

PATIENT
  Age: 77 Year
  Sex: Male

DRUGS (11)
  1. MEMANTINE HCL [Suspect]
     Indication: ABNORMAL BEHAVIOUR
     Dosage: 20 MG (20 MG, 1 IN 1 D), ORAL
     Route: 048
     Dates: start: 20080923
  2. LOXAPAC (SOLUTION) [Suspect]
     Indication: ABNORMAL BEHAVIOUR
     Dosage: 14 GTT (14 GTT, 1 IN 1 D), ORAL
     Route: 048
     Dates: start: 20080923, end: 20080928
  3. LOXAPAC (SOLUTION) [Suspect]
     Indication: ABNORMAL BEHAVIOUR
     Dosage: (1 IN 1 D), ORAL
     Route: 048
     Dates: start: 20080929
  4. ATARAX [Concomitant]
  5. TEGRETOL [Concomitant]
  6. XANAX [Concomitant]
  7. ISOPTIN [Concomitant]
  8. KARDEGIC [Concomitant]
  9. MICARDIS HCT [Concomitant]
  10. TAHOR [Concomitant]
  11. TANAKAN [Concomitant]

REACTIONS (4)
  - APATHY [None]
  - HEMIPLEGIA [None]
  - MYOCLONIC EPILEPSY [None]
  - PUPILS UNEQUAL [None]
